FAERS Safety Report 12607817 (Version 1)
Quarter: 2016Q3

REPORT INFORMATION
  Report Type: Spontaneous
  Country: US (occurrence: US)
  Receive Date: 20160729
  Receipt Date: 20160729
  Transmission Date: 20161109
  Serious: Yes (Hospitalization)
  Sender: FDA-Public Use
  Company Number: US-LPDUSPRD-20160646

PATIENT

DRUGS (4)
  1. CLONAZEPAM. [Concomitant]
     Active Substance: CLONAZEPAM
     Dosage: 2 MG 3 TIMES DAILY
  2. DEPAKENE [Concomitant]
     Active Substance: VALPROIC ACID
     Dosage: 500 MG TWICE DAILY
  3. OLANZAPINE FOR INJECTION (0517-0955-01) [Suspect]
     Active Substance: OLANZAPINE
     Dosage: 10 MG 3 TIMES DAILY
  4. HALDOL [Concomitant]
     Active Substance: HALOPERIDOL
     Dosage: 5 MG AS NEEDED

REACTIONS (1)
  - Disease progression [Not Recovered/Not Resolved]
